FAERS Safety Report 15794431 (Version 1)
Quarter: 2019Q1

REPORT INFORMATION
  Report Type: Spontaneous
  Country: US (occurrence: US)
  Receive Date: 20190106
  Receipt Date: 20190106
  Transmission Date: 20190417
  Serious: Yes (Death, Hospitalization)
  Sender: FDA-Public Use
  Company Number: None

PATIENT
  Age: 69 Year
  Sex: Male
  Weight: 225 kg

DRUGS (1)
  1. PERCOCET [Suspect]
     Active Substance: ACETAMINOPHEN\OXYCODONE HYDROCHLORIDE
     Indication: SPINAL FRACTURE
     Route: 048
     Dates: start: 19850101, end: 20180201

REACTIONS (7)
  - Product prescribing issue [None]
  - Withdrawal syndrome [None]
  - Pain [None]
  - Bedridden [None]
  - Gait inability [None]
  - Suicidal ideation [None]
  - Victim of elder abuse [None]

NARRATIVE: CASE EVENT DATE: 20180201
